FAERS Safety Report 17072445 (Version 2)
Quarter: 2019Q4

REPORT INFORMATION
  Report Type: Spontaneous
  Country: US (occurrence: US)
  Receive Date: 20191125
  Receipt Date: 20191210
  Transmission Date: 20200122
  Serious: No
  Sender: FDA-Public Use
  Company Number: US-TAKEDA-2019TUS066647

PATIENT
  Sex: Female
  Weight: 76.6 kg

DRUGS (1)
  1. ENTYVIO [Suspect]
     Active Substance: VEDOLIZUMAB
     Indication: CROHN^S DISEASE
     Dosage: 300 MILLIGRAM
     Route: 042
     Dates: start: 20190904

REACTIONS (4)
  - Hypoaesthesia [Unknown]
  - Pain in extremity [Recovered/Resolved]
  - Chest pain [Unknown]
  - Musculoskeletal pain [Unknown]
